FAERS Safety Report 5737612-9 (Version None)
Quarter: 2008Q2

REPORT INFORMATION
  Report Type: 
  Country: None (occurrence: None)
  Receive Date: 20080512
  Receipt Date: 20080512
  Transmission Date: 20081010
  Serious: No
  Sender: FDA-Public Use
  Company Number: None

PATIENT
  Age: 58 Year
  Sex: Female
  Weight: 111.1313 kg

DRUGS (9)
  1. METOPROLOL SUCCINATE [Suspect]
     Indication: ATRIAL FIBRILLATION
     Dosage: 50MG DAILY PO
     Route: 048
     Dates: start: 20080309, end: 20080312
  2. METOPROLOL SUCCINATE [Suspect]
     Indication: HYPERTENSION
     Dosage: 50MG DAILY PO
     Route: 048
     Dates: start: 20080309, end: 20080312
  3. METOPROLOL SUCCINATE [Suspect]
     Indication: ATRIAL FIBRILLATION
     Dosage: 50MG DAILY PO
     Route: 048
     Dates: start: 20080228
  4. METOPROLOL SUCCINATE [Suspect]
     Indication: HYPERTENSION
     Dosage: 50MG DAILY PO
     Route: 048
     Dates: start: 20080228
  5. METFORMIN HCL [Concomitant]
  6. SYNTHROID [Concomitant]
  7. AMIODARONE [Concomitant]
  8. PROTONIX [Concomitant]
  9. COUMADIN [Concomitant]

REACTIONS (1)
  - NAUSEA [None]
